FAERS Safety Report 10143254 (Version 1)
Quarter: 2014Q2

REPORT INFORMATION
  Report Type: Spontaneous
  Country: JP (occurrence: US)
  Receive Date: 20140430
  Receipt Date: 20140430
  Transmission Date: 20141212
  Serious: Yes (Other)
  Sender: FDA-Public Use
  Company Number: US-ASTRAZENECA-2014SE29156

PATIENT
  Sex: 0
  Weight: 2.2 kg

DRUGS (2)
  1. BLOPRESS [Suspect]
     Route: 064
  2. IMMUNOSUPPRESSANTS [Concomitant]
     Dosage: UNK
     Route: 064

REACTIONS (2)
  - Cyanosis neonatal [Recovering/Resolving]
  - Kidney enlargement [Unknown]
